FAERS Safety Report 8957579 (Version 2)
Quarter: 2013Q1

REPORT INFORMATION
  Report Type: Spontaneous
  Country: CA (occurrence: CA)
  Receive Date: 20121210
  Receipt Date: 20130123
  Transmission Date: 20140127
  Serious: Yes (Hospitalization, Other)
  Sender: FDA-Public Use
  Company Number: CA-CELGENEUS-028-50794-12114033

PATIENT
  Age: 70 Year
  Sex: Male

DRUGS (8)
  1. VIDAZA [Suspect]
     Indication: ACUTE MYELOID LEUKAEMIA
     Route: 058
     Dates: start: 200908, end: 201205
  2. FLOMAX [Concomitant]
     Indication: PRODUCT USED FOR UNKNOWN INDICATION
     Dosage: 1 PILL
     Route: 048
  3. SENOKOT [Concomitant]
     Indication: ABDOMINAL DISCOMFORT
     Route: 065
  4. COLACE [Concomitant]
     Indication: ABDOMINAL DISCOMFORT
     Route: 065
  5. PRBC [Concomitant]
     Indication: PRODUCT USED FOR UNKNOWN INDICATION
     Dosage: 4 UNITS
     Route: 065
     Dates: start: 20120813, end: 20120813
  6. CIPRO [Concomitant]
     Indication: PRODUCT USED FOR UNKNOWN INDICATION
     Route: 065
  7. TYLENOL 3 [Concomitant]
     Indication: PRODUCT USED FOR UNKNOWN INDICATION
     Route: 065
  8. SLEEPING PILL [Concomitant]
     Indication: POOR QUALITY SLEEP
     Route: 065

REACTIONS (1)
  - Bladder transitional cell carcinoma metastatic [Not Recovered/Not Resolved]
